FAERS Safety Report 4344959-X (Version None)
Quarter: 2004Q2

REPORT INFORMATION
  Report Type: 
  Country: None (occurrence: None)
  Receive Date: 20040420
  Receipt Date: 20040408
  Transmission Date: 20050107
  Serious: Yes (Other)
  Sender: FDA-Public Use
  Company Number: DE-SHR-04-023745

PATIENT
  Sex: Female

DRUGS (1)
  1. MIRENA [Suspect]
     Dosage: 20 MCG/DAY, CONT, INTRA-UTERINE
     Route: 015

REACTIONS (1)
  - GAMMA-GLUTAMYLTRANSFERASE INCREASED [None]
